FAERS Safety Report 7221254-2 (Version None)
Quarter: 2011Q1

REPORT INFORMATION
  Report Type: 
  Country: None (occurrence: None)
  Receive Date: 20110112
  Receipt Date: 20110105
  Transmission Date: 20110831
  Serious: Yes (Other)
  Sender: FDA-Public Use
  Company Number: IT-PFIZER INC-2010144553

PATIENT

DRUGS (3)
  1. VINCRISTINE SULFATE [Suspect]
     Indication: BONE SARCOMA
     Dosage: 1 MG/M2
     Route: 042
  2. DOXORUBICIN HCL [Suspect]
     Indication: BONE SARCOMA
     Dosage: 15 MG/M2
     Route: 042
  3. METHOTREXATE [Suspect]
     Indication: BONE SARCOMA
     Dosage: 10 MG/M2
     Route: 030

REACTIONS (1)
  - PNEUMOTHORAX [None]
